FAERS Safety Report 9570855 (Version 1)
Quarter: 2013Q3

REPORT INFORMATION
  Report Type: Spontaneous
  Country: US (occurrence: None)
  Receive Date: 20130926
  Receipt Date: 20130926
  Transmission Date: 20140515
  Serious: Yes (Other)
  Sender: FDA-Public Use
  Company Number: None

PATIENT
  Age: 68 Year
  Sex: Female
  Weight: 65.77 kg

DRUGS (1)
  1. CLONIDINE HCL [Suspect]
     Indication: HYPERTENSION
     Dosage: 1 PILL THREE TIMES DAILY TAKEN BY MOUTH
     Dates: start: 20130922, end: 20130925

REACTIONS (7)
  - Product quality issue [None]
  - Product substitution issue [None]
  - Headache [None]
  - Nervousness [None]
  - Palpitations [None]
  - Tremor [None]
  - Blood pressure increased [None]
